FAERS Safety Report 9017309 (Version 1)
Quarter: 2013Q1

REPORT INFORMATION
  Report Type: Spontaneous
  Country: US (occurrence: US)
  Receive Date: 20130117
  Receipt Date: 20130117
  Transmission Date: 20140127
  Serious: No
  Sender: FDA-Public Use
  Company Number: US-PFIZER INC-2013017309

PATIENT
  Age: 35 Year
  Sex: Female
  Weight: 68.02 kg

DRUGS (1)
  1. ADVIL PM [Suspect]
     Indication: INSOMNIA
     Dosage: UNK, 2X/DAY
     Dates: start: 2012

REACTIONS (1)
  - Drug ineffective [Unknown]
